FAERS Safety Report 22001220 (Version 2)
Quarter: 2023Q1

REPORT INFORMATION
  Report Type: Spontaneous
  Country: CA (occurrence: CA)
  Receive Date: 20230216
  Receipt Date: 20230308
  Transmission Date: 20230418
  Serious: Yes (Congenital Anomaly, Other)
  Sender: FDA-Public Use
  Company Number: CA-002147023-NVSC2023CA031167

PATIENT
  Age: 6 Month
  Sex: Female
  Weight: 3 kg

DRUGS (32)
  1. OMEPRAZOLE [Suspect]
     Active Substance: OMEPRAZOLE
     Indication: Foetal exposure during pregnancy
     Dosage: MATERNAL DOSE: UNK
     Route: 064
  2. OMEPRAZOLE [Suspect]
     Active Substance: OMEPRAZOLE
     Dosage: MATERNAL DOSE: UNK
     Route: 064
  3. DOCUSATE SODIUM [Suspect]
     Active Substance: DOCUSATE SODIUM
     Indication: Foetal exposure during pregnancy
     Dosage: MATERNAL DOSE: UNK
     Route: 064
  4. DOCUSATE SODIUM [Suspect]
     Active Substance: DOCUSATE SODIUM
     Dosage: MATERNAL DOSE: 90 MG, QD
     Route: 064
  5. DOCUSATE SODIUM [Suspect]
     Active Substance: DOCUSATE SODIUM
     Dosage: MATERNAL DOSE: UNK
     Route: 063
  6. CYCLOBENZAPRINE [Suspect]
     Active Substance: CYCLOBENZAPRINE
     Indication: Foetal exposure during pregnancy
     Dosage: MATERNAL DOSE: UNK
     Route: 064
  7. CYCLOBENZAPRINE [Suspect]
     Active Substance: CYCLOBENZAPRINE
     Dosage: MATERNAL DOSE: UNK
     Route: 064
  8. CYCLOBENZAPRINE [Suspect]
     Active Substance: CYCLOBENZAPRINE
     Dosage: MATERNAL DOSE: UNK
     Route: 064
  9. DOMPERIDONE [Suspect]
     Active Substance: DOMPERIDONE
     Indication: Foetal exposure during pregnancy
     Dosage: MATERNAL DOSE: UNK
     Route: 064
  10. DOMPERIDONE [Suspect]
     Active Substance: DOMPERIDONE
     Dosage: MATERNAL DOSE: 20 MG
     Route: 064
  11. DOMPERIDONE [Suspect]
     Active Substance: DOMPERIDONE
     Dosage: MATERNAL DOSE: 20 MG
     Route: 064
  12. DOMPERIDONE [Suspect]
     Active Substance: DOMPERIDONE
     Dosage: MATERNAL DOSE: UNK
     Route: 064
  13. FERROUS SULFATE [Suspect]
     Active Substance: FERROUS SULFATE
     Indication: Foetal exposure during pregnancy
     Dosage: MATERNAL DOSE: UNK
     Route: 064
  14. FERROUS SULFATE [Suspect]
     Active Substance: FERROUS SULFATE
     Dosage: MATERNAL DOSE: UNK
     Route: 064
  15. INSULIN NOS [Suspect]
     Active Substance: INSULIN NOS
     Indication: Foetal exposure during pregnancy
     Dosage: MATERNAL DOSE: UNK (GLOBULES ORAL)
     Route: 064
  16. INSULIN NOS [Suspect]
     Active Substance: INSULIN NOS
     Dosage: MATERNAL DOSE: UNK (GLOBULES ORAL)
     Route: 064
  17. FERROUS SULFATE ANHYDROUS [Suspect]
     Active Substance: FERROUS SULFATE ANHYDROUS
     Indication: Foetal exposure during pregnancy
     Dosage: MATERNAL DOSE: UNK
     Route: 064
  18. FERROUS SULFATE ANHYDROUS [Suspect]
     Active Substance: FERROUS SULFATE ANHYDROUS
     Dosage: MATERNAL DOSE: UNK
     Route: 064
  19. FERROUS SULFATE ANHYDROUS [Suspect]
     Active Substance: FERROUS SULFATE ANHYDROUS
     Dosage: MATERNAL DOSE: UNK
     Route: 064
  20. LEVOTHYROXINE SODIUM [Suspect]
     Active Substance: LEVOTHYROXINE SODIUM
     Indication: Foetal exposure during pregnancy
     Dosage: MATERNAL DOSE: UNK
     Route: 064
  21. LEVOTHYROXINE SODIUM [Suspect]
     Active Substance: LEVOTHYROXINE SODIUM
     Dosage: MATERNAL DOSE: UNK
     Route: 064
  22. LEVOTHYROXINE SODIUM [Suspect]
     Active Substance: LEVOTHYROXINE SODIUM
     Dosage: MATERNAL DOSE: UNK
     Route: 064
  23. METHYLPHENIDATE [Suspect]
     Active Substance: METHYLPHENIDATE
     Indication: Foetal exposure during pregnancy
     Dosage: MATERNAL DOSE: 36 MG
     Route: 064
  24. METHYLPHENIDATE [Suspect]
     Active Substance: METHYLPHENIDATE
     Dosage: MATERNAL DOSE: 36 MG
     Route: 064
  25. METHYLPHENIDATE [Suspect]
     Active Substance: METHYLPHENIDATE
     Dosage: MATERNAL DOSE: UNK
     Route: 064
  26. METHYLPHENIDATE [Suspect]
     Active Substance: METHYLPHENIDATE
     Dosage: MATERNAL DOSE: 36 MG, QD
     Route: 064
  27. DULOXETINE HYDROCHLORIDE [Suspect]
     Active Substance: DULOXETINE HYDROCHLORIDE
     Indication: Foetal exposure during pregnancy
     Dosage: MATERNAL DOSE: 90 MG, QD
     Route: 063
  28. DULOXETINE HYDROCHLORIDE [Suspect]
     Active Substance: DULOXETINE HYDROCHLORIDE
     Dosage: MATERNAL DOSE: 90 MG, QD
     Route: 064
  29. DULOXETINE HYDROCHLORIDE [Suspect]
     Active Substance: DULOXETINE HYDROCHLORIDE
     Dosage: MATERNAL DOSE: 90 MG, QD
     Route: 064
  30. DULOXETINE HYDROCHLORIDE [Suspect]
     Active Substance: DULOXETINE HYDROCHLORIDE
     Dosage: MATERNAL DOSE: UNK
     Route: 063
  31. URSODIOL [Suspect]
     Active Substance: URSODIOL
     Indication: Foetal exposure during pregnancy
     Dosage: MATERNAL DOSE: UNK
     Route: 064
  32. URSODIOL [Suspect]
     Active Substance: URSODIOL
     Dosage: MATERNAL DOSE: UNK
     Route: 064

REACTIONS (8)
  - Lung cyst [Unknown]
  - Pneumonia [Unknown]
  - Respiratory tract malformation [Unknown]
  - Pulmonary malformation [Recovered/Resolved]
  - Poor sucking reflex [Recovered/Resolved]
  - Somnolence [Unknown]
  - Foetal exposure timing unspecified [Recovered/Resolved]
  - Maternal exposure during breast feeding [Unknown]
